FAERS Safety Report 21730062 (Version 2)
Quarter: 2023Q1

REPORT INFORMATION
  Report Type: Report from Study
  Country: US (occurrence: US)
  Receive Date: 20221214
  Receipt Date: 20230110
  Transmission Date: 20230418
  Serious: Yes (Other)
  Sender: FDA-Public Use
  Company Number: US-ABBVIE-4228860

PATIENT
  Age: 26 Year
  Sex: Female
  Weight: 54.431 kg

DRUGS (2)
  1. SKYRIZI [Suspect]
     Active Substance: RISANKIZUMAB-RZAA
     Indication: Psoriasis
     Dosage: DAY 0, AND 4 VVEEKS LATER
     Route: 058
     Dates: start: 20221118, end: 202212
  2. SKYRIZI [Suspect]
     Active Substance: RISANKIZUMAB-RZAA
     Indication: Psoriasis

REACTIONS (7)
  - Throat tightness [Recovered/Resolved]
  - Rash [Not Recovered/Not Resolved]
  - Infectious mononucleosis [Unknown]
  - Off label use [Unknown]
  - Pruritus [Recovering/Resolving]
  - Dyspnoea [Unknown]
  - Throat tightness [Not Recovered/Not Resolved]

NARRATIVE: CASE EVENT DATE: 20221101
